FAERS Safety Report 9131337 (Version 1)
Quarter: 2013Q1

REPORT INFORMATION
  Report Type: Spontaneous
  Country: US (occurrence: US)
  Receive Date: 20130301
  Receipt Date: 20130301
  Transmission Date: 20140127
  Serious: Yes (Death)
  Sender: FDA-Public Use
  Company Number: US-ASTELLAS-2013US002099

PATIENT
  Sex: Female

DRUGS (1)
  1. PROGRAF [Suspect]
     Indication: LUNG TRANSPLANT
     Dosage: 1 MG, BID, 1 MG IN THE MORNING, 1 MG IN THE EVENING
     Route: 048
     Dates: start: 20120402, end: 20121110

REACTIONS (2)
  - Off label use [Unknown]
  - Transplant rejection [Fatal]
